FAERS Safety Report 6862558-2 (Version None)
Quarter: 2010Q3

REPORT INFORMATION
  Report Type: 
  Country: None (occurrence: None)
  Receive Date: 20100721
  Receipt Date: 20100715
  Transmission Date: 20110219
  Serious: Yes (Hospitalization)
  Sender: FDA-Public Use
  Company Number: US-SANOFI-AVENTIS-2010SA027614

PATIENT
  Age: 69 Year
  Sex: Male
  Weight: 73.2 kg

DRUGS (12)
  1. DOCETAXEL [Suspect]
     Indication: TONSIL CANCER
     Route: 041
     Dates: start: 20100504, end: 20100504
  2. CISPLATIN [Suspect]
     Indication: TONSIL CANCER
     Route: 041
     Dates: start: 20100504, end: 20100504
  3. BLINDED THERAPY [Suspect]
     Indication: TONSIL CANCER
     Route: 048
     Dates: start: 20100505, end: 20100507
  4. ACETAMINOPHEN [Concomitant]
     Route: 048
  5. AMLODIPINE [Concomitant]
     Route: 048
  6. HYDRALAZINE HCL [Concomitant]
     Route: 048
  7. METOPROLOL TARTRATE [Concomitant]
     Route: 048
  8. PERCOCET [Concomitant]
     Route: 048
  9. PROCHLORPERAZINE [Concomitant]
     Route: 042
  10. DOCUSATE SODIUM/SENNOSIDE A+B [Concomitant]
     Route: 048
  11. SIMVASTATIN [Concomitant]
     Route: 048
  12. TRIAMCINOLONE [Concomitant]
     Route: 061

REACTIONS (8)
  - DEHYDRATION [None]
  - DIARRHOEA [None]
  - DYSPHAGIA [None]
  - HYPONATRAEMIA [None]
  - MUSCULAR WEAKNESS [None]
  - NAUSEA [None]
  - NEUTROPENIA [None]
  - PLATELET COUNT DECREASED [None]
